FAERS Safety Report 22081218 (Version 1)
Quarter: 2023Q1

REPORT INFORMATION
  Report Type: Report from Study
  Country: CO (occurrence: CO)
  Receive Date: 20230309
  Receipt Date: 20230309
  Transmission Date: 20230418
  Serious: Yes (Hospitalization, Other)
  Sender: FDA-Public Use
  Company Number: CO-ABBVIE-4333384

PATIENT
  Age: 43 Year
  Sex: Female
  Weight: 64 kg

DRUGS (1)
  1. ZEMPLAR [Suspect]
     Active Substance: PARICALCITOL
     Indication: Hyperparathyroidism secondary
     Dosage: FORM STRENGTH: 5 MICROGRAM
     Route: 042
     Dates: start: 20170116, end: 20221028

REACTIONS (8)
  - Haemorrhage [Recovering/Resolving]
  - Complication associated with device [Recovering/Resolving]
  - Catheter site haemorrhage [Recovering/Resolving]
  - Catheter site infection [Recovering/Resolving]
  - Dialysis related complication [Recovering/Resolving]
  - Cough [Not Recovered/Not Resolved]
  - Catheter site pain [Recovering/Resolving]
  - Gait disturbance [Recovering/Resolving]

NARRATIVE: CASE EVENT DATE: 20221101
